FAERS Safety Report 15918912 (Version 1)
Quarter: 2019Q1

REPORT INFORMATION
  Report Type: Spontaneous
  Country: PL (occurrence: PL)
  Receive Date: 20190205
  Receipt Date: 20190205
  Transmission Date: 20190417
  Serious: Yes (Other)
  Sender: FDA-Public Use
  Company Number: PL-BOEHRINGERINGELHEIM-2017-BI-056525

PATIENT
  Age: 83 Year
  Sex: Male

DRUGS (3)
  1. BISOCARD [Concomitant]
     Active Substance: BISOPROLOL
     Dosage: UNK UNK, UNK
     Route: 065
  2. OMNIC OCAS [Suspect]
     Active Substance: TAMSULOSIN HYDROCHLORIDE
     Indication: POLLAKIURIA
     Dosage: 0.4
     Route: 065
     Dates: start: 201709
  3. ENARENAL [Concomitant]
     Active Substance: ENALAPRIL
     Dosage: UNK UNK, UNK
     Route: 065

REACTIONS (8)
  - Myocardial ischaemia [Unknown]
  - Hypoacusis [Unknown]
  - Insomnia [Unknown]
  - Drug ineffective [Unknown]
  - Hypotension [Recovered/Resolved]
  - Dizziness [Recovered/Resolved]
  - General physical health deterioration [Unknown]
  - Headache [Recovered/Resolved]

NARRATIVE: CASE EVENT DATE: 20170927
